FAERS Safety Report 21711256 (Version 2)
Quarter: 2022Q4

REPORT INFORMATION
  Report Type: Spontaneous
  Country: DZ (occurrence: DZ)
  Receive Date: 20221212
  Receipt Date: 20221228
  Transmission Date: 20230113
  Serious: Yes (Death, Other)
  Sender: FDA-Public Use
  Company Number: DZ-BIOVITRUM-2022DZ14607

PATIENT
  Age: 13 Year
  Sex: Female

DRUGS (4)
  1. KINERET [Suspect]
     Active Substance: ANAKINRA
     Indication: Still^s disease
     Dosage: 4MG/KG 2X/D FOR 2 DAYS
  2. KINERET [Suspect]
     Active Substance: ANAKINRA
     Dosage: 2MG/KG/DAY FOR 02 DAYS
     Dates: start: 20200630
  3. KINERET [Suspect]
     Active Substance: ANAKINRA
     Dosage: 10 MG/KG/DAY TWICE A DAY FOR 07 DAYS
     Dates: start: 20210215
  4. KINERET [Suspect]
     Active Substance: ANAKINRA
     Dates: end: 20210307

REACTIONS (5)
  - Pancytopenia [Fatal]
  - COVID-19 [Unknown]
  - Treatment failure [Unknown]
  - Drug ineffective for unapproved indication [Unknown]
  - Off label use [Unknown]

NARRATIVE: CASE EVENT DATE: 20201102
